FAERS Safety Report 20162125 (Version 1)
Quarter: 2021Q4

REPORT INFORMATION
  Report Type: Spontaneous
  Country: US (occurrence: None)
  Receive Date: 20211208
  Receipt Date: 20211208
  Transmission Date: 20220304
  Serious: Yes (Hospitalization)
  Sender: FDA-Public Use
  Company Number: None

PATIENT
  Sex: Female

DRUGS (3)
  1. CAPECITABINE [Suspect]
     Active Substance: CAPECITABINE
     Indication: Breast cancer female
     Dosage: OTHER FREQUENCY : 2 TIMES A DAY FOR ;?
     Route: 048
     Dates: start: 20210805
  2. FASLODEX [Concomitant]
     Active Substance: FULVESTRANT
  3. TALZENNA [Concomitant]
     Active Substance: TALAZOPARIB TOSYLATE

REACTIONS (1)
  - Hospitalisation [None]
